FAERS Safety Report 8572737 (Version 4)
Quarter: 2013Q2

REPORT INFORMATION
  Report Type: Spontaneous
  Country: US (occurrence: US)
  Receive Date: 20120522
  Receipt Date: 20130513
  Transmission Date: 20140414
  Serious: No
  Sender: FDA-Public Use
  Company Number: US-PFIZER INC-2012121464

PATIENT
  Age: 59 Year
  Sex: Female
  Weight: 91 kg

DRUGS (8)
  1. RELPAX [Suspect]
     Indication: MIGRAINE
     Dosage: 40 MG
     Route: 048
  2. LAMOTRIGINE [Concomitant]
     Dosage: UNK
  3. BUSPIRONE [Concomitant]
     Dosage: UNK
  4. SIMVASTATIN [Concomitant]
     Dosage: UNK
  5. TOPIRAMATE [Concomitant]
     Dosage: UNK
  6. ATENOLOL [Concomitant]
     Dosage: UNK
  7. LYRICA [Concomitant]
     Dosage: UNK
  8. PAROXETINE [Concomitant]
     Dosage: UNK

REACTIONS (3)
  - Pain [Unknown]
  - Migraine [Unknown]
  - Feeling abnormal [Unknown]
